FAERS Safety Report 4668743-2 (Version None)
Quarter: 2005Q2

REPORT INFORMATION
  Report Type: 
  Country: None (occurrence: None)
  Receive Date: 20050523
  Receipt Date: 20050512
  Transmission Date: 20051028
  Serious: Yes (Other)
  Sender: FDA-Public Use
  Company Number: 200511227EU

PATIENT
  Sex: Male
  Weight: 101 kg

DRUGS (1)
  1. FLAGYL [Suspect]
     Indication: INFECTION
     Dates: start: 20050412, end: 20050418

REACTIONS (6)
  - CONFUSIONAL STATE [None]
  - DEPRESSION [None]
  - DIZZINESS [None]
  - DYSGEUSIA [None]
  - HEADACHE [None]
  - SWOLLEN TONGUE [None]
